FAERS Safety Report 16748422 (Version 2)
Quarter: 2019Q3

REPORT INFORMATION
  Report Type: Spontaneous
  Country: US (occurrence: US)
  Receive Date: 20190828
  Receipt Date: 20190930
  Transmission Date: 20191005
  Serious: No
  Sender: FDA-Public Use
  Company Number: US-009507513-1908USA009274

PATIENT
  Age: 17 Year
  Sex: Male

DRUGS (2)
  1. SINGULAIR [Suspect]
     Active Substance: MONTELUKAST SODIUM
     Dosage: UNK
     Route: 048
     Dates: end: 20190817
  2. SINGULAIR [Suspect]
     Active Substance: MONTELUKAST SODIUM
     Indication: SEASONAL ALLERGY
     Dosage: ONCE DAILY
     Route: 048
     Dates: start: 2016

REACTIONS (7)
  - Arthralgia [Unknown]
  - Muscle spasms [Not Recovered/Not Resolved]
  - Oropharyngeal pain [Not Recovered/Not Resolved]
  - Ear infection [Unknown]
  - Wheezing [Unknown]
  - Pharyngitis [Recovering/Resolving]
  - Headache [Unknown]

NARRATIVE: CASE EVENT DATE: 201906
